FAERS Safety Report 25037131 (Version 3)
Quarter: 2025Q1

REPORT INFORMATION
  Report Type: Spontaneous
  Country: DE (occurrence: DE)
  Receive Date: 20250304
  Receipt Date: 20250328
  Transmission Date: 20250409
  Serious: Yes (Other)
  Sender: BAXTER
  Company Number: DE-BAXTER-2025BAX011698

PATIENT
  Age: 29 Year
  Sex: Female
  Weight: 96 kg

DRUGS (17)
  1. TISSEEL [Suspect]
     Active Substance: FIBRINOGEN HUMAN\HUMAN THROMBIN
     Indication: Epidural haemorrhage
     Route: 065
     Dates: start: 20220127, end: 20220127
  2. TISSEEL [Suspect]
     Active Substance: FIBRINOGEN HUMAN\HUMAN THROMBIN
     Indication: Epidural haemorrhage
     Route: 065
     Dates: start: 20220127, end: 20220127
  3. TISSEEL [Suspect]
     Active Substance: FIBRINOGEN HUMAN\HUMAN THROMBIN
     Indication: Epidural haemorrhage
     Route: 065
     Dates: start: 20220127, end: 20220127
  4. TISSEEL [Suspect]
     Active Substance: FIBRINOGEN HUMAN\HUMAN THROMBIN
     Indication: Spinal decompression
     Route: 065
     Dates: start: 20220128
  5. TISSEEL [Suspect]
     Active Substance: FIBRINOGEN HUMAN\HUMAN THROMBIN
     Indication: Spinal decompression
     Route: 065
     Dates: start: 20220128
  6. TISSEEL [Suspect]
     Active Substance: FIBRINOGEN HUMAN\HUMAN THROMBIN
     Indication: Spinal decompression
     Route: 065
     Dates: start: 20220128
  7. TISSEEL [Suspect]
     Active Substance: FIBRINOGEN HUMAN\HUMAN THROMBIN
     Route: 065
     Dates: start: 20220129
  8. TISSEEL [Suspect]
     Active Substance: FIBRINOGEN HUMAN\HUMAN THROMBIN
     Route: 065
     Dates: start: 20220129
  9. TISSEEL [Suspect]
     Active Substance: FIBRINOGEN HUMAN\HUMAN THROMBIN
     Route: 065
     Dates: start: 20220129
  10. TACHOSIL [Suspect]
     Active Substance: FIBRINOGEN HUMAN\HUMAN THROMBIN
     Indication: Epidural haemorrhage
     Route: 065
     Dates: start: 20220127
  11. TACHOSIL [Suspect]
     Active Substance: FIBRINOGEN HUMAN\HUMAN THROMBIN
     Route: 065
     Dates: start: 20220128
  12. TACHOSIL [Suspect]
     Active Substance: FIBRINOGEN HUMAN\HUMAN THROMBIN
     Route: 065
     Dates: start: 20220129
  13. CELLULOSE, OXIDIZED [Suspect]
     Active Substance: CELLULOSE, OXIDIZED
     Indication: Epidural haemorrhage
     Route: 050
     Dates: start: 20220129
  14. ENOXAPARIN [Concomitant]
     Active Substance: ENOXAPARIN
     Route: 065
  15. LEVOTHYROXINE SODIUM [Concomitant]
     Active Substance: LEVOTHYROXINE SODIUM
     Route: 065
  16. METAMIZOL [Concomitant]
     Active Substance: METAMIZOLE SODIUM
     Route: 065
  17. PANTOPRAZOLE SODIUM [Concomitant]
     Active Substance: PANTOPRAZOLE SODIUM
     Route: 065

REACTIONS (26)
  - Paraplegia [Not Recovered/Not Resolved]
  - Cerebrospinal fluid leakage [Recovered/Resolved]
  - Nervous system disorder [Not Recovered/Not Resolved]
  - Pain [Not Recovered/Not Resolved]
  - Monoplegia [Recovering/Resolving]
  - Dysstasia [Not Recovered/Not Resolved]
  - Gait disturbance [Recovering/Resolving]
  - Pain in extremity [Recovering/Resolving]
  - Hypoaesthesia [Not Recovered/Not Resolved]
  - Hyperreflexia [Not Recovered/Not Resolved]
  - Sensory loss [Not Recovered/Not Resolved]
  - Muscular weakness [Not Recovered/Not Resolved]
  - Sciatica [Not Recovered/Not Resolved]
  - Mobility decreased [Recovering/Resolving]
  - Loss of control of legs [Not Recovered/Not Resolved]
  - Hypoaesthesia [Not Recovered/Not Resolved]
  - Muscle twitching [Not Recovered/Not Resolved]
  - Urine output decreased [Unknown]
  - Cauda equina syndrome [Not Recovered/Not Resolved]
  - Atonic urinary bladder [Not Recovered/Not Resolved]
  - Urinary retention [Not Recovered/Not Resolved]
  - Failed back surgery syndrome [Not Recovered/Not Resolved]
  - Frequent bowel movements [Unknown]
  - Abnormal faeces [Unknown]
  - Anal sphincter atony [Unknown]
  - Procedural pain [Unknown]

NARRATIVE: CASE EVENT DATE: 20220127
